FAERS Safety Report 8148089-0 (Version None)
Quarter: 2012Q1

REPORT INFORMATION
  Report Type: 
  Country: None (occurrence: None)
  Receive Date: 20120218
  Receipt Date: 20110407
  Transmission Date: 20120608
  Serious: No
  Sender: FDA-Public Use
  Company Number: US-ALLERGAN-1104944US

PATIENT
  Age: 52 Year
  Sex: Female

DRUGS (7)
  1. NEXIUM [Concomitant]
     Indication: GASTROOESOPHAGEAL REFLUX DISEASE
     Dosage: 40 MG, BID
  2. BOTULINUM TOXIN TYPE A [Suspect]
     Indication: MIGRAINE
     Dosage: UNK
     Route: 030
     Dates: start: 20110323, end: 20110323
  3. CYMBALTA [Concomitant]
     Indication: DEPRESSION
     Dosage: 50 MG, BID
     Route: 048
  4. VERAPAMIL [Concomitant]
     Indication: MIGRAINE
     Dosage: 180 MG, UNK
  5. EVISTA [Concomitant]
     Indication: HORMONE REPLACEMENT THERAPY
     Dosage: 60 MG, QD
  6. SYMBICORT [Concomitant]
     Indication: ASTHMA
     Dosage: 160 MG, BID
     Route: 055
  7. ALLEGRA [Concomitant]
     Indication: SEASONAL ALLERGY
     Dosage: 180 MG, QD

REACTIONS (2)
  - EYELID PTOSIS [None]
  - DYSPNOEA [None]
